FAERS Safety Report 20485102 (Version 1)
Quarter: 2022Q1

REPORT INFORMATION
  Report Type: Spontaneous
  Country: US (occurrence: US)
  Receive Date: 20220217
  Receipt Date: 20220217
  Transmission Date: 20220423
  Serious: Yes (Other)
  Sender: FDA-Public Use
  Company Number: US-SA-SAC20220211000017

PATIENT
  Age: 30 Year
  Sex: Male

DRUGS (4)
  1. ALPROLIX [Suspect]
     Active Substance: EFTRENONACOG ALFA
     Indication: Hereditary disorder
     Dosage: 8600 IU, QOW
     Route: 041
     Dates: start: 20220111
  2. ALPROLIX [Suspect]
     Active Substance: EFTRENONACOG ALFA
     Indication: Hereditary disorder
     Dosage: 8600 IU, QOW
     Route: 041
     Dates: start: 20220111
  3. ALPROLIX [Suspect]
     Active Substance: EFTRENONACOG ALFA
     Indication: Prophylaxis
     Dosage: 8600 IU, PRN
     Route: 041
     Dates: start: 20220111
  4. ALPROLIX [Suspect]
     Active Substance: EFTRENONACOG ALFA
     Indication: Prophylaxis
     Dosage: 8600 IU, PRN
     Route: 041
     Dates: start: 20220111

REACTIONS (1)
  - Haemorrhage [Unknown]

NARRATIVE: CASE EVENT DATE: 20220101
